FAERS Safety Report 20862886 (Version 1)
Quarter: 2022Q2

REPORT INFORMATION
  Report Type: Report from Study
  Country: IT (occurrence: IT)
  Receive Date: 20220523
  Receipt Date: 20220523
  Transmission Date: 20220721
  Serious: Yes (Hospitalization)
  Sender: FDA-Public Use
  Company Number: None

PATIENT
  Age: 26 Year
  Sex: Female

DRUGS (2)
  1. LYRICA [Suspect]
     Active Substance: PREGABALIN
     Indication: Bipolar disorder
     Dosage: 600 MG, TOTAL
     Route: 048
     Dates: start: 20180101
  2. ASPIRIN [Suspect]
     Active Substance: ASPIRIN
     Dosage: 14000 MG, TOTAL
     Route: 048
     Dates: start: 20220330, end: 20220330

REACTIONS (4)
  - Drug abuse [Recovering/Resolving]
  - Toxicity to various agents [Recovering/Resolving]
  - Somnolence [Recovering/Resolving]
  - Gastritis erosive [Recovering/Resolving]

NARRATIVE: CASE EVENT DATE: 20220330
